FAERS Safety Report 15567374 (Version 1)
Quarter: 2018Q4

REPORT INFORMATION
  Report Type: Spontaneous
  Country: CN (occurrence: CN)
  Receive Date: 20181030
  Receipt Date: 20181030
  Transmission Date: 20190205
  Serious: No
  Sender: FDA-Public Use
  Company Number: CN-ELI_LILLY_AND_COMPANY-CN201810012215

PATIENT
  Age: 49 Year
  Sex: Male
  Weight: 85 kg

DRUGS (3)
  1. ASTEMIZOL [Concomitant]
     Indication: PRODUCT USED FOR UNKNOWN INDICATION
     Dosage: UNK, UNKNOWN
     Route: 065
  2. CIALIS [Suspect]
     Active Substance: TADALAFIL
     Indication: ERECTILE DYSFUNCTION
     Dosage: 5 MG, DAILY
     Route: 065
     Dates: start: 201810
  3. CIALIS [Suspect]
     Active Substance: TADALAFIL
     Dosage: 5 MG, EVERY OTHER DAY
     Route: 065

REACTIONS (4)
  - Visual acuity reduced [Recovering/Resolving]
  - Arthralgia [Recovering/Resolving]
  - Ocular discomfort [Recovering/Resolving]
  - Feeling hot [Recovering/Resolving]
